FAERS Safety Report 6332782-6 (Version None)
Quarter: 2009Q3

REPORT INFORMATION
  Report Type: 
  Country: None (occurrence: None)
  Receive Date: 20090828
  Receipt Date: 20090820
  Transmission Date: 20100115
  Serious: Yes (Hospitalization)
  Sender: FDA-Public Use
  Company Number: B0589431A

PATIENT
  Sex: Male

DRUGS (11)
  1. AVANDIA [Suspect]
     Dosage: 4MG PER DAY
     Route: 048
  2. IMMUCYST [Suspect]
     Dosage: 81MG SEE DOSAGE TEXT
     Dates: start: 20090201, end: 20090618
  3. GLUCOPHAGE [Suspect]
     Dosage: 850MG THREE TIMES PER DAY
     Route: 048
  4. GLIBENCLAMIDE [Suspect]
     Dosage: 5MG THREE TIMES PER DAY
     Route: 048
  5. JANUVIA [Suspect]
     Dosage: 100MG PER DAY
     Route: 048
  6. COVERSYL [Suspect]
     Dosage: 4MG PER DAY
     Route: 048
  7. EZETROL [Suspect]
     Dosage: 10MG PER DAY
     Route: 048
  8. BISOPROLOL [Suspect]
     Dosage: 10MG PER DAY
     Route: 048
  9. CIFLOX [Concomitant]
     Indication: CYSTITIS
     Dosage: 500MG TWICE PER DAY
     Route: 048
     Dates: start: 20090601
  10. MOPRAL [Concomitant]
     Dosage: 20MG PER DAY
     Route: 048
     Dates: start: 20090601, end: 20090601
  11. DOLIPRANE [Concomitant]
     Dosage: 1G THREE TIMES PER DAY
     Route: 048
     Dates: start: 20090601

REACTIONS (5)
  - C-REACTIVE PROTEIN INCREASED [None]
  - CHOLESTASIS [None]
  - GRANULOMATOUS LIVER DISEASE [None]
  - HEPATOCELLULAR INJURY [None]
  - HYPERTHERMIA [None]
